FAERS Safety Report 20667479 (Version 1)
Quarter: 2022Q2

REPORT INFORMATION
  Report Type: Spontaneous
  Country: US (occurrence: US)
  Receive Date: 20220404
  Receipt Date: 20220404
  Transmission Date: 20220721
  Serious: No
  Sender: FDA-Public Use
  Company Number: US-AMGEN-USASP2022051269

PATIENT
  Age: 71 Year
  Sex: Female

DRUGS (1)
  1. REPATHA [Suspect]
     Active Substance: EVOLOCUMAB
     Indication: Diabetes mellitus
     Dosage: 140 MILLIGRAM, Q2WK
     Route: 065
     Dates: start: 20220219, end: 20220319

REACTIONS (6)
  - Feeling abnormal [Unknown]
  - Chest discomfort [Recovered/Resolved]
  - Asthenia [Unknown]
  - Skin burning sensation [Unknown]
  - Off label use [Unknown]
  - Rash [Unknown]

NARRATIVE: CASE EVENT DATE: 20220322
